FAERS Safety Report 7295986-4 (Version None)
Quarter: 2011Q1

REPORT INFORMATION
  Report Type: 
  Country: None (occurrence: None)
  Receive Date: 20110211
  Receipt Date: 20110211
  Transmission Date: 20110831
  Serious: Yes (Hospitalization)
  Sender: FDA-Public Use
  Company Number: None

PATIENT
  Sex: Female
  Weight: 100.5 kg

DRUGS (2)
  1. TOPIRAMATE [Suspect]
     Indication: MAJOR DEPRESSION
     Dosage: 50MG ONCE DAILY ORAL
     Route: 048
  2. TOPIRAMATE [Suspect]
     Indication: MANIA
     Dosage: 50MG ONCE DAILY ORAL
     Route: 048

REACTIONS (1)
  - PULMONARY EMBOLISM [None]
